FAERS Safety Report 13830794 (Version 1)
Quarter: 2017Q3

REPORT INFORMATION
  Report Type: Spontaneous
  Country: DK (occurrence: DK)
  Receive Date: 20170803
  Receipt Date: 20170803
  Transmission Date: 20171127
  Serious: Yes (Hospitalization)
  Sender: FDA-Public Use
  Company Number: DK-TEVA-791063ACC

PATIENT
  Age: 41 Year
  Sex: Male

DRUGS (1)
  1. METHYLPHENIDATE ^ACTAVIS^ [Suspect]
     Active Substance: METHYLPHENIDATE
     Indication: ATTENTION DEFICIT/HYPERACTIVITY DISORDER
     Dosage: 36 MILLIGRAM DAILY;
     Route: 048
     Dates: start: 20170621, end: 20170717

REACTIONS (5)
  - Delusion [Unknown]
  - Disorientation [Unknown]
  - Memory impairment [Unknown]
  - Psychotic disorder [Not Recovered/Not Resolved]
  - Hallucination [Unknown]

NARRATIVE: CASE EVENT DATE: 201707
